FAERS Safety Report 5203127-X (Version None)
Quarter: 2006Q4

REPORT INFORMATION
  Report Type: 
  Country: None (occurrence: None)
  Receive Date: 20061016
  Receipt Date: 20051024
  Transmission Date: 20070319
  Serious: Yes (Hospitalization, Other)
  Sender: FDA-Public Use
  Company Number: 2005139376

PATIENT
  Age: 69 Year
  Sex: Female

DRUGS (6)
  1. NEURONTIN [Suspect]
     Indication: HERPES ZOSTER
  2. GABAPENTIN [Suspect]
     Indication: HERPES ZOSTER
  3. WARFARIN SODIUM [Concomitant]
  4. MULTIVITAMIN [Concomitant]
  5. STRESSTABS (VITAMINS NOS) [Concomitant]
  6. FOLIC ACID [Concomitant]

REACTIONS (4)
  - BODY HEIGHT DECREASED [None]
  - CHOLELITHIASIS [None]
  - DRUG INEFFECTIVE [None]
  - PAIN [None]
